FAERS Safety Report 17530767 (Version 1)
Quarter: 2020Q1

REPORT INFORMATION
  Report Type: Spontaneous
  Country: GB (occurrence: GB)
  Receive Date: 20200312
  Receipt Date: 20200312
  Transmission Date: 20200409
  Serious: Yes (Death)
  Sender: FDA-Public Use
  Company Number: GB-TEVA-2020-GB-1197030

PATIENT
  Age: 30 Year
  Sex: Male
  Weight: 90 kg

DRUGS (2)
  1. AQUEOUS CREAM [Concomitant]
     Dosage: 500 GRAM USE AS A SOAP SUBSTITUTE
     Dates: start: 20191203
  2. AMOXICILLIN. [Suspect]
     Active Substance: AMOXICILLIN
     Dosage: 1500 MG
     Dates: start: 20200115, end: 20200123

REACTIONS (1)
  - Peripheral swelling [Fatal]

NARRATIVE: CASE EVENT DATE: 20200115
